FAERS Safety Report 5812725-1 (Version None)
Quarter: 2008Q3

REPORT INFORMATION
  Report Type: 
  Country: None (occurrence: None)
  Receive Date: 20080711
  Receipt Date: 20080703
  Transmission Date: 20090109
  Serious: Yes (Death, Hospitalization)
  Sender: FDA-Public Use
  Company Number: 163-20785-08050587

PATIENT
  Age: 50 Year
  Sex: Male

DRUGS (10)
  1. THALOMID [Suspect]
     Indication: MULTIPLE MYELOMA
     Dosage: 300 MG, QD X 14 DAYS, ORAL, 200 MG, QD X 7 DAYS, ORAL, 100 MG, QD X 7 DAYS, ORAL
     Route: 048
     Dates: start: 20080421, end: 20080401
  2. THALOMID [Suspect]
     Indication: MULTIPLE MYELOMA
     Dosage: 300 MG, QD X 14 DAYS, ORAL, 200 MG, QD X 7 DAYS, ORAL, 100 MG, QD X 7 DAYS, ORAL
     Route: 048
     Dates: start: 20080401, end: 20080501
  3. THALOMID [Suspect]
     Indication: MULTIPLE MYELOMA
     Dosage: 300 MG, QD X 14 DAYS, ORAL, 200 MG, QD X 7 DAYS, ORAL, 100 MG, QD X 7 DAYS, ORAL
     Route: 048
     Dates: start: 20080501, end: 20080501
  4. OXYCODONE HCL [Concomitant]
  5. MIRALAX [Concomitant]
  6. MAGNEWIUM (MAGNESIUM) [Concomitant]
  7. FERROUS GLUCONATE (FERROUS GLUCONATE( [Concomitant]
  8. FENTANYL [Concomitant]
  9. CULTURELLE (CULTURELLE) [Concomitant]
  10. CHLORHEXIDINE GLUCONATE [Concomitant]

REACTIONS (9)
  - ASTHENIA [None]
  - HAEMOPTYSIS [None]
  - HYPOTENSION [None]
  - HYPOXIA [None]
  - MULTIPLE MYELOMA [None]
  - PANCYTOPENIA [None]
  - PETECHIAE [None]
  - PULMONARY HAEMORRHAGE [None]
  - STOMATITIS [None]
